FAERS Safety Report 12196101 (Version 2)
Quarter: 2016Q2

REPORT INFORMATION
  Report Type: Spontaneous
  Country: NZ (occurrence: NZ)
  Receive Date: 20160321
  Receipt Date: 20160403
  Transmission Date: 20160815
  Serious: Yes (Hospitalization, Other)
  Sender: FDA-Public Use
  Company Number: NZ-MYLANLABS-2016M1010479

PATIENT

DRUGS (3)
  1. VANCOMYCIN MYLAN [Suspect]
     Active Substance: VANCOMYCIN
     Dosage: 1 G, UNK
     Dates: start: 20160309, end: 20160309
  2. VANCOMYCIN MYLAN [Suspect]
     Active Substance: VANCOMYCIN
     Indication: OSTEOMYELITIS
     Dosage: UNK
     Dates: start: 20160304, end: 20160304
  3. VANCOMYCIN MYLAN [Suspect]
     Active Substance: VANCOMYCIN
     Dosage: UNK
     Dates: start: 20160310, end: 20160310

REACTIONS (5)
  - Malaise [Unknown]
  - Antibiotic level above therapeutic [Recovered/Resolved]
  - Renal failure [Unknown]
  - Acute kidney injury [Unknown]
  - Incorrect drug administration rate [Unknown]

NARRATIVE: CASE EVENT DATE: 201603
